FAERS Safety Report 10018699 (Version 1)
Quarter: 2014Q1

REPORT INFORMATION
  Report Type: Spontaneous
  Country: US (occurrence: None)
  Receive Date: 20140314
  Receipt Date: 20140314
  Transmission Date: 20141002
  Serious: Yes (Hospitalization)
  Sender: FDA-Public Use
  Company Number: None

PATIENT
  Age: 52 Year
  Sex: Female
  Weight: 60.33 kg

DRUGS (2)
  1. OXYCODONE [Suspect]
     Indication: RADICULAR PAIN
     Route: 048
     Dates: start: 20030603, end: 20030807
  2. OXYCONTIN [Suspect]
     Indication: RADICULAR PAIN
     Route: 048
     Dates: start: 20030603, end: 20030807

REACTIONS (11)
  - Asthenia [None]
  - Malaise [None]
  - Pain [None]
  - Drug effect decreased [None]
  - Weight increased [None]
  - Generalised oedema [None]
  - Fatigue [None]
  - Insomnia [None]
  - Withdrawal syndrome [None]
  - Drug interaction [None]
  - Drug tolerance [None]
